FAERS Safety Report 9619647 (Version 1)
Quarter: 2013Q4

REPORT INFORMATION
  Report Type: Report from Study
  Country: AR (occurrence: AR)
  Receive Date: 20131014
  Receipt Date: 20131014
  Transmission Date: 20140711
  Serious: Yes (Other)
  Sender: FDA-Public Use
  Company Number: PHHY2013AR114935

PATIENT
  Sex: Female

DRUGS (2)
  1. RASILEZ [Suspect]
     Indication: HYPERTENSION
     Dosage: 0.5 DF, QD
     Route: 048
  2. CORBIS [Concomitant]
     Dosage: UNK UKN, UNK

REACTIONS (6)
  - Arrhythmia [Recovering/Resolving]
  - Chest pain [Recovering/Resolving]
  - Back pain [Recovering/Resolving]
  - Wrong technique in drug usage process [Unknown]
  - Eye disorder [Unknown]
  - Hypotension [Recovered/Resolved]
